FAERS Safety Report 6636180-7 (Version None)
Quarter: 2010Q1

REPORT INFORMATION
  Report Type: 
  Country: None (occurrence: None)
  Receive Date: 20100316
  Receipt Date: 20100304
  Transmission Date: 20100710
  Serious: Yes (Life-Threatening, Other)
  Sender: FDA-Public Use
  Company Number: GB-ELI_LILLY_AND_COMPANY-GB201003001128

PATIENT
  Age: 48 Year
  Sex: Female

DRUGS (3)
  1. FLUOXETINE [Suspect]
     Dosage: 20 MG, DAILY (1/D)
     Route: 048
  2. COPAXONE [Concomitant]
     Indication: MULTIPLE SCLEROSIS
     Dosage: 20 MG, DAILY (1/D)
     Route: 058
  3. LANSOPRAZOLE [Concomitant]

REACTIONS (1)
  - OESOPHAGEAL CARCINOMA [None]
